FAERS Safety Report 14156070 (Version 3)
Quarter: 2018Q1

REPORT INFORMATION
  Report Type: Spontaneous
  Country: CH (occurrence: CH)
  Receive Date: 20171103
  Receipt Date: 20180101
  Transmission Date: 20180508
  Serious: Yes (Other)
  Sender: FDA-Public Use
  Company Number: DE-AMGEN-DEUSP2017165741

PATIENT
  Age: 59 Year
  Sex: Male

DRUGS (3)
  1. ENBREL [Suspect]
     Active Substance: ETANERCEPT
     Indication: PRODUCT USED FOR UNKNOWN INDICATION
     Dosage: 50 MG, EVERY 11 DAYS
     Route: 065
     Dates: start: 2012, end: 201708
  2. METFIN [Concomitant]
     Active Substance: METFORMIN HYDROCHLORIDE
     Dosage: UNK
     Route: 065
  3. FENTANYL. [Concomitant]
     Active Substance: FENTANYL
     Dosage: 50 AND 12 EVERY 3 DAYS

REACTIONS (6)
  - Demyelination [Unknown]
  - Spondylitis [Unknown]
  - Product use issue [Unknown]
  - Noninfective encephalitis [Unknown]
  - Hypoaesthesia [Unknown]
  - Paraesthesia [Unknown]
